FAERS Safety Report 5369224-3 (Version None)
Quarter: 2007Q2

REPORT INFORMATION
  Report Type: 
  Country: None (occurrence: None)
  Receive Date: 20070625
  Receipt Date: 20070223
  Transmission Date: 20071010
  Serious: No
  Sender: FDA-Public Use
  Company Number: US-ASTRAZENECA-2007UW03619

PATIENT

DRUGS (3)
  1. CRESTOR [Suspect]
  2. CYCLOSPORINE [Interacting]
  3. ZETIA [Concomitant]

REACTIONS (1)
  - DRUG INTERACTION [None]
